FAERS Safety Report 16764581 (Version 1)
Quarter: 2019Q3

REPORT INFORMATION
  Report Type: Spontaneous
  Country: CN (occurrence: CN)
  Receive Date: 20190902
  Receipt Date: 20190902
  Transmission Date: 20191005
  Serious: Yes (Other)
  Sender: FDA-Public Use
  Company Number: PHHY2019CN202734

PATIENT
  Age: 54 Year
  Sex: Male

DRUGS (1)
  1. AFINITOR [Suspect]
     Active Substance: EVEROLIMUS
     Indication: VON HIPPEL-LINDAU DISEASE
     Dosage: UNK
     Route: 048

REACTIONS (4)
  - Haemangioblastoma [Unknown]
  - Intracranial tumour haemorrhage [Unknown]
  - Renal cancer metastatic [Unknown]
  - Product use in unapproved indication [Unknown]

NARRATIVE: CASE EVENT DATE: 201307
